FAERS Safety Report 9841863 (Version 1)
Quarter: 2013Q4

REPORT INFORMATION
  Report Type: Spontaneous
  Country: US (occurrence: None)
  Receive Date: 20131219
  Receipt Date: 20131219
  Transmission Date: 20140711
  Serious: Yes (Disabling)
  Sender: FDA-Public Use
  Company Number: 163-20785-13020135

PATIENT
  Age: 72 Year
  Sex: Female
  Weight: 81.65 kg

DRUGS (3)
  1. THALOMID (THALIDOMIDE) (CAPSULES) [Suspect]
     Indication: PULMONARY FIBROSIS
     Route: 048
     Dates: start: 201212, end: 20130201
  2. CELLCEPT [Concomitant]
  3. PREDNISONE [Concomitant]

REACTIONS (1)
  - Drug ineffective [None]
